FAERS Safety Report 9110336 (Version 2)
Quarter: 2013Q2

REPORT INFORMATION
  Report Type: Spontaneous
  Country: US (occurrence: US)
  Receive Date: 20130222
  Receipt Date: 20130521
  Transmission Date: 20140414
  Serious: No
  Sender: FDA-Public Use
  Company Number: US-009507513-1302USA010065

PATIENT
  Age: 57 Year
  Sex: Male

DRUGS (4)
  1. PEG-INTRON [Suspect]
     Indication: HEPATITIS C
     Dosage: UNK
     Dates: start: 20130214
  2. RIBAVIRIN [Suspect]
     Indication: HEPATITIS C
     Dosage: UNK
     Dates: start: 20130214
  3. SUBOXONE [Concomitant]
  4. VICTRELIS [Suspect]
     Indication: HEPATITIS C
     Dosage: UNK
     Dates: start: 20130315

REACTIONS (7)
  - Nervousness [Unknown]
  - Skin disorder [Unknown]
  - Anaemia [Unknown]
  - Neutropenia [Unknown]
  - Fatigue [Unknown]
  - Vision blurred [Unknown]
  - Tooth loss [Unknown]
